FAERS Safety Report 13305730 (Version 1)
Quarter: 2017Q1

REPORT INFORMATION
  Report Type: Spontaneous
  Country: US (occurrence: US)
  Receive Date: 20170308
  Receipt Date: 20170308
  Transmission Date: 20170428
  Serious: Yes (Disabling)
  Sender: FDA-Public Use
  Company Number: US-TEVA-746424USA

PATIENT
  Age: 53 Year
  Sex: Female
  Weight: 79.45 kg

DRUGS (3)
  1. BUPROPION HYDROCHLORIDE XL [Suspect]
     Active Substance: BUPROPION HYDROCHLORIDE
     Route: 065
  2. DIAZEPAM. [Suspect]
     Active Substance: DIAZEPAM
     Route: 065
  3. QUETIAPINE FUMARATE. [Suspect]
     Active Substance: QUETIAPINE FUMARATE
     Route: 065

REACTIONS (11)
  - Stress [Unknown]
  - Emotional distress [Unknown]
  - Weight decreased [Unknown]
  - Disability [Unknown]
  - Insomnia [Unknown]
  - Feeling abnormal [Unknown]
  - Sleep disorder [Unknown]
  - Eating disorder [Unknown]
  - Thinking abnormal [Unknown]
  - Weight increased [Unknown]
  - Discomfort [Unknown]
